FAERS Safety Report 9376651 (Version 1)
Quarter: 2013Q3

REPORT INFORMATION
  Report Type: Spontaneous
  Country: US (occurrence: US)
  Receive Date: 20130701
  Receipt Date: 20130701
  Transmission Date: 20140515
  Serious: No
  Sender: FDA-Public Use
  Company Number: US-BIOGENIDEC-2013BI057605

PATIENT
  Age: 43 Year
  Sex: Female

DRUGS (1)
  1. TYSABRI [Suspect]
     Indication: MULTIPLE SCLEROSIS
     Route: 042
     Dates: start: 20130213

REACTIONS (9)
  - Myopia [Recovered/Resolved]
  - Colour blindness acquired [Recovered/Resolved]
  - Disorientation [Recovered/Resolved]
  - Poor venous access [Recovered/Resolved]
  - Migraine with aura [Recovered/Resolved]
  - Visual impairment [Not Recovered/Not Resolved]
  - Catheter placement [Unknown]
  - Infusion site pain [Recovered/Resolved]
  - Nausea [Recovered/Resolved]
